FAERS Safety Report 4867458-5 (Version None)
Quarter: 2005Q4

REPORT INFORMATION
  Report Type: 
  Country: None (occurrence: None)
  Receive Date: 20051222
  Receipt Date: 20051213
  Transmission Date: 20060501
  Serious: Yes (Life-Threatening, Hospitalization)
  Sender: FDA-Public Use
  Company Number: 05H-163-0304194-00

PATIENT
  Age: 34 Year
  Sex: Female

DRUGS (2)
  1. MORPHINE SULFATE INJ [Suspect]
     Dosage: 3 MG; 40 MG
     Dates: start: 20051129
  2. MORPHINE SULFATE INJ [Suspect]
     Dosage: 3 MG; 40 MG
     Dates: start: 20051129

REACTIONS (4)
  - HYPOVENTILATION [None]
  - ILEUS [None]
  - LOSS OF CONSCIOUSNESS [None]
  - POST PROCEDURAL COMPLICATION [None]
